FAERS Safety Report 8766687 (Version 2)
Quarter: 2012Q4

REPORT INFORMATION
  Report Type: 
  Country: DE (occurrence: DE)
  Receive Date: 20120904
  Receipt Date: 20121011
  Transmission Date: 20130627
  Serious: Yes (Death)
  Sender: FDA-Public Use
  Company Number: DE-CELGENEUS-062-21880-12072761

PATIENT
  Age: 44 Year
  Sex: Male

DRUGS (3)
  1. REVLIMID [Suspect]
     Indication: HODGKIN^S LYMPHOMA
     Route: 048
     Dates: start: 2007, end: 2007
  2. REVLIMID [Suspect]
     Indication: MDS
  3. REVLIMID [Suspect]
     Indication: MYELOID LEUKEMIA

REACTIONS (1)
  - Death [Fatal]
